FAERS Safety Report 5909461-X (Version None)
Quarter: 2008Q4

REPORT INFORMATION
  Report Type: 
  Country: None (occurrence: None)
  Receive Date: 20081006
  Receipt Date: 20080924
  Transmission Date: 20090506
  Serious: Yes (Other)
  Sender: FDA-Public Use
  Company Number: US-PFIZER INC-2008081800

PATIENT
  Sex: Female
  Weight: 72.727 kg

DRUGS (2)
  1. CHANTIX [Suspect]
     Dates: start: 20080919, end: 20080922
  2. PEPCID AC [Concomitant]
     Indication: ULCER

REACTIONS (7)
  - ABDOMINAL DISCOMFORT [None]
  - ABDOMINAL PAIN UPPER [None]
  - EATING DISORDER [None]
  - NAUSEA [None]
  - ORAL DISORDER [None]
  - TONGUE COATED [None]
  - WEIGHT INCREASED [None]
